FAERS Safety Report 6699272-2 (Version None)
Quarter: 2010Q2

REPORT INFORMATION
  Report Type: 
  Country: None (occurrence: None)
  Receive Date: 20100427
  Receipt Date: 20100413
  Transmission Date: 20101027
  Serious: Yes (Other)
  Sender: FDA-Public Use
  Company Number: JP-BAUSCH-2010BL002010

PATIENT
  Age: 44 Year
  Sex: Female

DRUGS (4)
  1. FLUOCINOLONE ACETONIDE [Suspect]
     Route: 047
     Dates: start: 20061201
  2. FLUOCINOLONE ACETONIDE [Suspect]
  3. FLUOCINOLONE ACETONIDE [Suspect]
     Route: 047
     Dates: start: 20030221
  4. FLUOCINOLONE ACETONIDE [Concomitant]
     Route: 047
     Dates: start: 20060818

REACTIONS (1)
  - OCULAR NEOPLASM [None]
